FAERS Safety Report 8993244 (Version 2)
Quarter: 2013Q1

REPORT INFORMATION
  Report Type: Spontaneous
  Country: US (occurrence: US)
  Receive Date: 20130102
  Receipt Date: 20130201
  Transmission Date: 20140127
  Serious: No
  Sender: FDA-Public Use
  Company Number: US-PFIZER INC-2012333235

PATIENT
  Age: 60 Year
  Sex: Female
  Weight: 137 kg

DRUGS (9)
  1. LYRICA [Suspect]
     Indication: NEURALGIA
     Dosage: 50 MG, 3X/DAY
     Dates: start: 20120330, end: 20121003
  2. LYRICA [Suspect]
     Indication: FIBROMYALGIA
     Dosage: 75 MG, 3X/DAY
     Dates: start: 20121102, end: 20121121
  3. LYRICA [Suspect]
     Indication: NEUROPATHY PERIPHERAL
     Dosage: 50 MG, 3X/DAY
  4. GABAPENTIN [Suspect]
     Indication: NEURALGIA
     Dosage: UNK
     Route: 048
     Dates: start: 201112
  5. GABAPENTIN [Suspect]
     Indication: FIBROMYALGIA
     Dosage: 800 MG, THREE TO FOUR TIMES A DAY
     Route: 048
     Dates: end: 201209
  6. GABAPENTIN [Suspect]
     Dosage: 800 MG, TID-QID
     Route: 048
     Dates: start: 20121121, end: 20121227
  7. CELEBREX [Concomitant]
     Indication: ARTHRITIS
     Dosage: 200 MG,DAILY
  8. MORPHINE [Concomitant]
     Indication: PAIN
     Dosage: UNK
  9. ZOLPIDEM [Concomitant]
     Indication: SEDATIVE THERAPY
     Dosage: UNK

REACTIONS (7)
  - Feeling abnormal [Unknown]
  - Drug ineffective [Unknown]
  - Gastric disorder [Unknown]
  - Pharyngeal disorder [Unknown]
  - Weight increased [Unknown]
  - Neuralgia [Not Recovered/Not Resolved]
  - Therapeutic response unexpected [Unknown]
